FAERS Safety Report 5632381-5 (Version None)
Quarter: 2008Q1

REPORT INFORMATION
  Report Type: 
  Country: None (occurrence: None)
  Receive Date: 20080220
  Receipt Date: 20080208
  Transmission Date: 20080703
  Serious: Yes (Other)
  Sender: FDA-Public Use
  Company Number: US-ELI_LILLY_AND_COMPANY-US200801004704

PATIENT
  Sex: Male
  Weight: 90.703 kg

DRUGS (6)
  1. CYMBALTA [Suspect]
     Indication: MAJOR DEPRESSION
     Dosage: 30 MG, 2/D
     Dates: start: 20070101
  2. VALIUM [Concomitant]
     Dosage: 5 MG, 3/D
     Route: 048
  3. METHADONE HCL [Concomitant]
     Dosage: 40 MG, DAILY (1/D)
  4. RISPERDAL [Concomitant]
     Dosage: 0.5 MG, EACH EVENING
  5. TRAZODONE HCL [Concomitant]
     Indication: SLEEP DISORDER
     Dosage: 150 MG, EACH EVENING
     Dates: start: 20071228
  6. LACTULOSE [Concomitant]
     Dosage: 1 D/F, DAILY (1/D)

REACTIONS (6)
  - ANKLE FRACTURE [None]
  - DIZZINESS [None]
  - DRUG INTERACTION [None]
  - FALL [None]
  - ORTHOSTATIC HYPOTENSION [None]
  - SYNCOPE [None]
